FAERS Safety Report 8186410-8 (Version None)
Quarter: 2012Q1

REPORT INFORMATION
  Report Type: 
  Country: None (occurrence: None)
  Receive Date: 20120305
  Receipt Date: 20120305
  Transmission Date: 20120608
  Serious: Yes (Life-Threatening, Other)
  Sender: FDA-Public Use
  Company Number: None

PATIENT
  Sex: Female
  Weight: 52.1637 kg

DRUGS (3)
  1. PRIVIGEN [Suspect]
     Indication: IMMUNODEFICIENCY COMMON VARIABLE
     Dosage: CK WITH HOSPITAL THT SWITCHED GAMMAGUARD TO PRIVIGEN I.V. Q 1 MO I.V.
     Route: 042
     Dates: start: 20110201
  2. PRIVIGEN [Suspect]
     Indication: IMMUNODEFICIENCY COMMON VARIABLE
     Dosage: CK WITH HOSPITAL THT SWITCHED GAMMAGUARD TO PRIVIGEN I.V. Q 1 MO I.V.
     Route: 042
     Dates: start: 20110301
  3. PRIVIGEN [Suspect]
     Indication: IMMUNODEFICIENCY COMMON VARIABLE
     Dosage: CK WITH HOSPITAL THT SWITCHED GAMMAGUARD TO PRIVIGEN I.V. Q 1 MO I.V.
     Route: 042
     Dates: start: 20111201

REACTIONS (4)
  - HYPOTENSION [None]
  - COLITIS [None]
  - EPISTAXIS [None]
  - BLOOD PRESSURE INCREASED [None]
